FAERS Safety Report 4384144-9 (Version None)
Quarter: 2004Q2

REPORT INFORMATION
  Report Type: 
  Country: None (occurrence: None)
  Receive Date: 20040623
  Receipt Date: 20040623
  Transmission Date: 20050107
  Serious: Yes (Hospitalization, Other)
  Sender: FDA-Public Use
  Company Number: None

PATIENT
  Age: 30 Month
  Sex: Male
  Weight: 12 kg

DRUGS (1)
  1. LERTAMINE-D (LORATADINE 5MG / PSEUDOEPHEDRINE 60MG) SYRUP [Suspect]
     Indication: NASAL CONGESTION
     Dosage: 2.5 ML ORAL
     Route: 048
     Dates: start: 20040523, end: 20040523

REACTIONS (4)
  - CONVULSION [None]
  - CYANOSIS [None]
  - LARYNGEAL OEDEMA [None]
  - LOSS OF CONSCIOUSNESS [None]
